FAERS Safety Report 9828700 (Version 1)
Quarter: 2014Q1

REPORT INFORMATION
  Report Type: Spontaneous
  Country: US (occurrence: US)
  Receive Date: 20140117
  Receipt Date: 20140117
  Transmission Date: 20141002
  Serious: No
  Sender: FDA-Public Use
  Company Number: US-TEVA-456797USA

PATIENT
  Sex: Male
  Weight: 70.37 kg

DRUGS (4)
  1. PROAIR HFA [Suspect]
     Indication: INFLUENZA
     Route: 055
     Dates: start: 20130114
  2. PROAIR HFA [Suspect]
     Indication: ASTHMA
  3. TYLENOL [Concomitant]
     Indication: INFLUENZA
  4. LEVAQUIN [Concomitant]
     Indication: ANTIBIOTIC THERAPY

REACTIONS (2)
  - Respiratory disorder [Not Recovered/Not Resolved]
  - Underdose [Unknown]
